FAERS Safety Report 9119599 (Version 2)
Quarter: 2013Q2

REPORT INFORMATION
  Report Type: Spontaneous
  Country: US (occurrence: US)
  Receive Date: 20130226
  Receipt Date: 20130426
  Transmission Date: 20140414
  Serious: Yes (Hospitalization)
  Sender: FDA-Public Use
  Company Number: US-BAYER-2013-023357

PATIENT
  Age: 44 Year
  Sex: Female

DRUGS (12)
  1. YAZ [Suspect]
  2. YASMIN [Suspect]
  3. CELEBREX [Concomitant]
  4. VITAMIN D2 [Concomitant]
  5. DETROL LA [Concomitant]
  6. DHEA [Concomitant]
  7. ARMOUR THYROID [Concomitant]
  8. AZITHROMYCIN [Concomitant]
  9. BENZONATATE [Concomitant]
  10. XOPENEX [Concomitant]
  11. HYDROCODONE/ACETAMINOPHEN [Concomitant]
  12. PROMETRIUM [Concomitant]

REACTIONS (2)
  - Deep vein thrombosis [None]
  - Injury [None]
